FAERS Safety Report 4667629-7 (Version None)
Quarter: 2005Q2

REPORT INFORMATION
  Report Type: 
  Country: None (occurrence: None)
  Receive Date: 20050502
  Receipt Date: 20040719
  Transmission Date: 20051028
  Serious: Yes (Hospitalization, Other)
  Sender: FDA-Public Use
  Company Number: PHEH2004US07054

PATIENT
  Age: 43 Year
  Sex: Male
  Weight: 86.6 kg

DRUGS (2)
  1. LOTREL [Suspect]
     Indication: HYPERTENSION
     Dosage: 10 MG AMLOD/20 MG BENAZ QD
     Dates: start: 20010508, end: 20040621
  2. HYDROCHLOROTHIAZIDE [Concomitant]

REACTIONS (1)
  - SWELLING FACE [None]
